FAERS Safety Report 9516332 (Version 1)
Quarter: 2013Q1

REPORT INFORMATION
  Report Type: Spontaneous
  Country: US (occurrence: None)
  Receive Date: 20130305
  Receipt Date: 20130305
  Transmission Date: 20140127
  Serious: Yes (Hospitalization)
  Sender: FDA-Public Use
  Company Number: 163-21880-12012059

PATIENT
  Age: 45 Year
  Sex: Female

DRUGS (7)
  1. REVLIMID (LENALIDOMIDE) (15 MILLIGRAM, CAPSULES) [Suspect]
     Indication: PLASMA CELL MYELOMA
     Dosage: X 21 DAYS
     Route: 048
     Dates: start: 20111203, end: 20120109
  2. VELCADE [Concomitant]
  3. DECADRON [Concomitant]
  4. GABAPENTIN [Concomitant]
  5. GEMFRIBROZIL [Concomitant]
  6. METHOCARBAMOL [Concomitant]
  7. OMEPRAZOLE [Concomitant]

REACTIONS (2)
  - Plasma cell myeloma [None]
  - Bone disorder [None]
